FAERS Safety Report 4584135-9 (Version None)
Quarter: 2005Q1

REPORT INFORMATION
  Report Type: 
  Country: None (occurrence: None)
  Receive Date: 20050216
  Receipt Date: 20050208
  Transmission Date: 20050727
  Serious: Yes (Hospitalization, Other)
  Sender: FDA-Public Use
  Company Number: US-BRISTOL-MYERS SQUIBB COMPANY-12853933

PATIENT
  Age: 66 Year
  Sex: Male
  Weight: 77 kg

DRUGS (3)
  1. EXCEDRIN ES TABS [Suspect]
     Indication: HEADACHE
     Dosage: 2TABS PRN; 1989, 2TABS, 5-9X/DAY(10-18 TABS WITHIN 24-HR PERIOD);CURRENTLY TAKES 4-6/DAY PRN
     Route: 048
     Dates: start: 19650101
  2. ACCURETIC [Concomitant]
     Indication: BLOOD PRESSURE
     Dosage: 20/25MG TABLET
  3. NEXIUM [Concomitant]
     Dosage: STARTED APPROXIMATELY 3 WEEKS AGO
     Dates: start: 20050201

REACTIONS (2)
  - DRUG DEPENDENCE [None]
  - HAEMORRHAGE [None]
